FAERS Safety Report 8920757 (Version 1)
Quarter: 2012Q4

REPORT INFORMATION
  Report Type: Report from Study
  Country: JP (occurrence: US)
  Receive Date: 20121122
  Receipt Date: 20121122
  Transmission Date: 20130627
  Serious: Yes (Life-Threatening, Hospitalization)
  Sender: FDA-Public Use
  Company Number: JP-CELGENEUS-163-50794-12112726

PATIENT
  Age: 79 Year
  Sex: Male
  Weight: 70 kg

DRUGS (7)
  1. VIDAZA [Suspect]
     Indication: MYELODYSPLASTIC SYNDROME
     Route: 065
     Dates: start: 20110628, end: 20110704
  2. VIDAZA [Suspect]
     Dosage: 75 milligram/sq. meter
     Route: 041
     Dates: start: 20110822, end: 20110830
  3. GASTER [Concomitant]
     Indication: DRUG USE FOR UNKNOWN INDICATION
     Route: 065
     Dates: start: 20110628
  4. CRAVIT [Concomitant]
     Indication: PROPHYLAXIS
     Route: 065
     Dates: start: 20110630, end: 20110711
  5. ITRIZOLE [Concomitant]
     Indication: DRUG USE FOR UNKNOWN INDICATION
     Route: 065
     Dates: start: 20110628
  6. NASEA-OD [Concomitant]
     Indication: DRUG USE FOR UNKNOWN INDICATION
     Route: 065
     Dates: start: 20110628, end: 20110830
  7. NEUTROGIN [Concomitant]
     Indication: DRUG USE FOR UNKNOWN INDICATION
     Route: 065
     Dates: start: 20110704, end: 20110920

REACTIONS (8)
  - White blood cell count decreased [Recovered/Resolved]
  - White blood cell count decreased [Recovered/Resolved]
  - White blood cell count decreased [Recovered/Resolved]
  - Neutrophil count decreased [Recovered/Resolved]
  - Neutrophil count decreased [Recovered/Resolved]
  - Febrile neutropenia [Recovered/Resolved]
  - Febrile neutropenia [Unknown]
  - Pneumonia [Recovered/Resolved]
